FAERS Safety Report 9788056 (Version 1)
Quarter: 2013Q4

REPORT INFORMATION
  Report Type: Spontaneous
  Country: US (occurrence: None)
  Receive Date: 20131227
  Receipt Date: 20131227
  Transmission Date: 20140711
  Serious: Yes (Hospitalization)
  Sender: FDA-Public Use
  Company Number: None

PATIENT
  Age: 79 Year
  Sex: Male
  Weight: 108.2 kg

DRUGS (16)
  1. WARFARIN [Suspect]
     Indication: PULMONARY EMBOLISM
     Dosage: 5MG TTHS PO
     Route: 048
  2. WARFARIN [Suspect]
     Indication: DEEP VEIN THROMBOSIS
     Dosage: 5MG TTHS PO
     Route: 048
  3. ASPIRIN [Suspect]
     Indication: CORONARY ARTERY DISEASE
     Dosage: CHRONIC
     Route: 048
  4. METOCLOPRAMIDE [Concomitant]
  5. NEURONTIN [Concomitant]
  6. DILANTIN [Concomitant]
  7. DUTASTERIDE [Concomitant]
  8. TAMSULOSIN [Concomitant]
  9. ROSUVASTATIN [Concomitant]
  10. RANITIDINE [Concomitant]
  11. REPAGLINIDE [Concomitant]
  12. FUROSEMID [Concomitant]
  13. CENTRUM SILVER [Concomitant]
  14. SIMETHICONE [Concomitant]
  15. MAABX [Concomitant]
  16. TYLENOL [Concomitant]

REACTIONS (7)
  - Non-cardiac chest pain [None]
  - Chest discomfort [None]
  - Anaemia [None]
  - Occult blood positive [None]
  - Serum ferritin decreased [None]
  - Haemorrhage [None]
  - Gastrointestinal disorder [None]
